FAERS Safety Report 4960708-6 (Version None)
Quarter: 2006Q2

REPORT INFORMATION
  Report Type: 
  Country: None (occurrence: None)
  Receive Date: 20060403
  Receipt Date: 20060224
  Transmission Date: 20061013
  Serious: Yes (Disabling, Other)
  Sender: FDA-Public Use
  Company Number: 2006UW05245

PATIENT
  Age: 54 Year
  Sex: Female
  Weight: 123.2 kg

DRUGS (12)
  1. SEROQUEL [Suspect]
     Indication: MAJOR DEPRESSION
     Route: 048
     Dates: end: 20060201
  2. SEROQUEL [Suspect]
     Indication: PSYCHOTIC DISORDER
     Route: 048
     Dates: end: 20060201
  3. SEROQUEL [Suspect]
     Route: 048
     Dates: start: 20030501, end: 20060201
  4. SEROQUEL [Suspect]
     Route: 048
     Dates: start: 20030501, end: 20060201
  5. CELEXA [Concomitant]
     Indication: DEPRESSION
     Route: 048
     Dates: start: 20010101
  6. CLONAZEPAM [Concomitant]
     Indication: ANXIETY
     Route: 048
     Dates: start: 20020101
  7. BEXTRA [Concomitant]
  8. VIOXX [Concomitant]
  9. RISPERIDONE [Concomitant]
  10. ZYPREXA [Concomitant]
  11. PANTOPRAZOLE SODIUM [Concomitant]
  12. LOXAPINE [Concomitant]
     Indication: PSYCHOTIC DISORDER
     Route: 048
     Dates: start: 20060223

REACTIONS (8)
  - ARTHRALGIA [None]
  - BLADDER PAIN [None]
  - INTESTINAL FUNCTIONAL DISORDER [None]
  - MUSCULOSKELETAL STIFFNESS [None]
  - MYALGIA [None]
  - SWELLING [None]
  - WEIGHT DECREASED [None]
  - WEIGHT INCREASED [None]
